FAERS Safety Report 4969251-1 (Version None)
Quarter: 2006Q2

REPORT INFORMATION
  Report Type: 
  Country: None (occurrence: None)
  Receive Date: 20060411
  Receipt Date: 20060330
  Transmission Date: 20061013
  Serious: Yes (Hospitalization)
  Sender: FDA-Public Use
  Company Number: US-AVENTIS-200613058US

PATIENT
  Age: 90 Year
  Sex: Female

DRUGS (3)
  1. KETEK [Suspect]
     Indication: SINUSITIS
     Dosage: DOSE: UNKNOWN
     Route: 048
     Dates: start: 20060309, end: 20060310
  2. LANOXIN [Concomitant]
     Dosage: DOSE: UNKNOWN
  3. DIURETICS [Concomitant]
     Dosage: DOSE: UNKNOWN

REACTIONS (6)
  - ALANINE AMINOTRANSFERASE INCREASED [None]
  - ASPARTATE AMINOTRANSFERASE INCREASED [None]
  - BLOOD ALKALINE PHOSPHATASE INCREASED [None]
  - BLOOD BILIRUBIN INCREASED [None]
  - HEPATIC TRAUMA [None]
  - MALAISE [None]
